FAERS Safety Report 6029188-6 (Version None)
Quarter: 2009Q1

REPORT INFORMATION
  Report Type: 
  Country: None (occurrence: None)
  Receive Date: 20090102
  Receipt Date: 20081219
  Transmission Date: 20090719
  Serious: Yes (Other)
  Sender: FDA-Public Use
  Company Number: SPV1-2008-02818

PATIENT
  Age: 7 Year
  Sex: Female

DRUGS (1)
  1. VYVANSE [Suspect]
     Dosage: MG, ORAL
     Route: 048

REACTIONS (3)
  - BLOOD PRESSURE INCREASED [None]
  - RENAL FAILURE [None]
  - VICTIM OF CRIME [None]
